FAERS Safety Report 25942064 (Version 1)
Quarter: 2025Q4

REPORT INFORMATION
  Report Type: Spontaneous
  Country: US (occurrence: US)
  Receive Date: 20251020
  Receipt Date: 20251020
  Transmission Date: 20260118
  Serious: Yes (Other)
  Sender: HLS THERAPEUTICS
  Company Number: US-HLS-202500356

PATIENT
  Sex: Male

DRUGS (4)
  1. CLOZARIL [Suspect]
     Active Substance: CLOZAPINE
     Indication: Product used for unknown indication
     Dosage: 20 YEARS AGO, PRESCRIPTION OF CLOZARIL WAS TO TAKE 200 - 300 MG
     Route: 065
  2. CLOZARIL [Suspect]
     Active Substance: CLOZAPINE
     Indication: Product used for unknown indication
     Route: 065
  3. CLOZARIL [Suspect]
     Active Substance: CLOZAPINE
     Indication: Product used for unknown indication
     Dosage: ABOUT 5 TO 6 YEARS AGO
     Route: 065
  4. ABILIFY [Concomitant]
     Active Substance: ARIPIPRAZOLE
     Indication: Schizophrenia
     Route: 065

REACTIONS (7)
  - Hallucination, auditory [Unknown]
  - Osteomyelitis [Unknown]
  - Dizziness [Unknown]
  - Dry mouth [Unknown]
  - Thirst [Unknown]
  - Feeling abnormal [Unknown]
  - Dysphagia [Unknown]
